FAERS Safety Report 12127613 (Version 2)
Quarter: 2016Q1

REPORT INFORMATION
  Report Type: Report from Study
  Country: IT (occurrence: IT)
  Receive Date: 20160229
  Receipt Date: 20160321
  Transmission Date: 20160526
  Serious: Yes (Death, Hospitalization)
  Sender: FDA-Public Use
  Company Number: IT-ASTRAZENECA-2016SE18424

PATIENT
  Age: 74 Year
  Sex: Female
  Weight: 84 kg

DRUGS (7)
  1. FULVESTRANT [Suspect]
     Active Substance: FULVESTRANT
     Indication: BREAST CANCER
     Dosage: 500MG ON DAYS 1 AND 15 OF CYCLE AND BEYOD
     Route: 030
     Dates: start: 20150911, end: 20160211
  2. URBASON [Concomitant]
     Active Substance: METHYLPREDNISOLONE
     Dates: start: 20150925
  3. ZOMETA [Concomitant]
     Active Substance: ZOLEDRONIC ACID
     Dates: start: 20141216
  4. ABEMACICLIB CODE NOT BROKEN [Suspect]
     Active Substance: ABEMACICLIB
     Indication: BREAST CANCER
     Dosage: DAILY ON DAYS 1-28 OF A 28 DAY CYCLE
     Route: 048
     Dates: start: 20150911
  5. PLASIL [Concomitant]
     Active Substance: METOCLOPRAMIDE HYDROCHLORIDE
     Dates: start: 20151230, end: 20160120
  6. TACHIPIRINA [Concomitant]
     Active Substance: ACETAMINOPHEN
     Dates: start: 20151230
  7. PANTORC [Concomitant]
     Active Substance: PANTOPRAZOLE SODIUM
     Dates: start: 20160118

REACTIONS (1)
  - General physical health deterioration [Fatal]

NARRATIVE: CASE EVENT DATE: 20160210
